FAERS Safety Report 22112745 (Version 2)
Quarter: 2023Q2

REPORT INFORMATION
  Report Type: Spontaneous
  Country: JP (occurrence: JP)
  Receive Date: 20230319
  Receipt Date: 20230425
  Transmission Date: 20230722
  Serious: Yes (Other)
  Sender: FDA-Public Use
  Company Number: JP-SAKK-2023SA084881AA

PATIENT
  Age: 27 Year
  Sex: Female

DRUGS (8)
  1. DUPIXENT [Suspect]
     Active Substance: DUPILUMAB
     Indication: Dermatitis atopic
     Dosage: 300 MG, QOW
     Route: 058
     Dates: start: 202303, end: 20230313
  2. DUPIXENT [Suspect]
     Active Substance: DUPILUMAB
     Dosage: 300 UNK, QOW
     Route: 058
     Dates: start: 20220325, end: 20220924
  3. POLARAMINE [Concomitant]
     Active Substance: DEXCHLORPHENIRAMINE MALEATE
     Indication: Product used for unknown indication
     Route: 065
  4. CLOBETASOL [Concomitant]
     Active Substance: CLOBETASOL
     Indication: Dermatitis atopic
     Route: 065
  5. BETAMETHASONE SODIUM PHOSPHATE [Concomitant]
     Active Substance: BETAMETHASONE SODIUM PHOSPHATE
     Indication: Dermatitis atopic
     Dosage: 3 TABLETS/DAY FOR 3 DAYS
     Route: 065
     Dates: start: 2023, end: 2023
  6. BETAMETHASONE SODIUM PHOSPHATE [Concomitant]
     Active Substance: BETAMETHASONE SODIUM PHOSPHATE
     Indication: Toxic skin eruption
     Dosage: 2 TABLETS/DAY FOR 2 DAYS
     Route: 065
     Dates: start: 2023, end: 2023
  7. BETAMETHASONE SODIUM PHOSPHATE [Concomitant]
     Active Substance: BETAMETHASONE SODIUM PHOSPHATE
     Indication: Dermatitis atopic
     Dosage: 1 TABLET/DAY FOR 2 DAYS
     Route: 065
     Dates: start: 2023, end: 2023
  8. BETAMETHASONE SODIUM PHOSPHATE [Concomitant]
     Active Substance: BETAMETHASONE SODIUM PHOSPHATE
     Dosage: UNK
     Route: 065

REACTIONS (4)
  - Toxic skin eruption [Recovered/Resolved]
  - Erythema multiforme [Recovered/Resolved]
  - Dermatitis atopic [Unknown]
  - Pyrexia [Recovered/Resolved]

NARRATIVE: CASE EVENT DATE: 20230301
